FAERS Safety Report 8189971-8 (Version None)
Quarter: 2012Q1

REPORT INFORMATION
  Report Type: 
  Country: None (occurrence: None)
  Receive Date: 20120307
  Receipt Date: 20120226
  Transmission Date: 20120608
  Serious: Yes (Disabling, Other)
  Sender: FDA-Public Use
  Company Number: ES-SANOFI-AVENTIS-2012SA013148

PATIENT
  Age: 79 Year
  Sex: Female
  Weight: 85 kg

DRUGS (2)
  1. ANTITHROMBOTIC AGENTS [Suspect]
     Route: 065
  2. ENOXAPARIN SODIUM [Suspect]
     Route: 058

REACTIONS (3)
  - PARAPARESIS [None]
  - SPINAL CORD INFARCTION [None]
  - MUSCLE HAEMORRHAGE [None]
